FAERS Safety Report 13631667 (Version 4)
Quarter: 2017Q3

REPORT INFORMATION
  Report Type: Report from Study
  Country: US (occurrence: US)
  Receive Date: 20170608
  Receipt Date: 20170717
  Transmission Date: 20171127
  Serious: Yes (Hospitalization)
  Sender: FDA-Public Use
  Company Number: US-ACTELION-A-NJ2017-153311

PATIENT
  Age: 45 Year
  Sex: Male
  Weight: 94.79 kg

DRUGS (19)
  1. METOLAZONE. [Concomitant]
     Active Substance: METOLAZONE
     Dosage: 5 MG, ON MONDAY AND FRIDAY
  2. REVATIO [Concomitant]
     Active Substance: SILDENAFIL CITRATE
     Dosage: 40 MG, TID
  3. UPTRAVI [Suspect]
     Active Substance: SELEXIPAG
     Dosage: 800 MCG, QD
     Route: 048
  4. UPTRAVI [Suspect]
     Active Substance: SELEXIPAG
     Indication: PULMONARY HYPERTENSION
     Dosage: 800 MCG IN AM, 1000 MCG IN PM
     Route: 048
  5. FERROUS [Concomitant]
     Active Substance: IRON
     Dosage: 325 MG, BID
  6. ATORVASTATIN [Concomitant]
     Active Substance: ATORVASTATIN
     Dosage: 40 MG, QD
  7. GABAPENTIN. [Concomitant]
     Active Substance: GABAPENTIN
     Dosage: 300 MG, QD
  8. MELATONIN [Concomitant]
     Active Substance: MELATONIN
     Dosage: 6 MG, QPM
  9. TORSEMIDE. [Concomitant]
     Active Substance: TORSEMIDE
     Dosage: 100 MG, BEFORE MEALS
  10. TRAMADOL. [Concomitant]
     Active Substance: TRAMADOL
     Dosage: 50 MG, Q12HRS
  11. OXYGEN. [Concomitant]
     Active Substance: OXYGEN
  12. POTASSIUM CHLORIDE. [Concomitant]
     Active Substance: POTASSIUM CHLORIDE
     Dosage: 40 MEQ, BID (EXCEPT MONDAY AND FRIDAY)
  13. RENAGEL [Concomitant]
     Active Substance: SEVELAMER HYDROCHLORIDE
     Dosage: 800 MG, TID
  14. UPTRAVI [Suspect]
     Active Substance: SELEXIPAG
     Dosage: 600 MCG, BID
     Route: 048
  15. UPTRAVI [Suspect]
     Active Substance: SELEXIPAG
     Dosage: 800 MCG, BID
     Route: 048
  16. COUMADIN [Concomitant]
     Active Substance: WARFARIN SODIUM
     Dosage: 2 MG, QD
  17. BENZONATATE. [Concomitant]
     Active Substance: BENZONATATE
     Dosage: 100 MG, TID
  18. DULCOLAX NOS [Concomitant]
     Active Substance: BISACODYL OR DOCUSATE SODIUM
     Dosage: 10 MG, QD
  19. PANTOPRAZOLE [Concomitant]
     Active Substance: PANTOPRAZOLE
     Dosage: 40 MG, BID

REACTIONS (8)
  - Clamping of blood vessel [Unknown]
  - Gastritis erosive [Unknown]
  - Respiratory arrest [Unknown]
  - Respiratory failure [Unknown]
  - Syncope [Unknown]
  - Headache [Unknown]
  - Gastrointestinal haemorrhage [Unknown]
  - Treatment noncompliance [Unknown]

NARRATIVE: CASE EVENT DATE: 201705
